FAERS Safety Report 6492688-9 (Version None)
Quarter: 2009Q4

REPORT INFORMATION
  Report Type: 
  Country: None (occurrence: None)
  Receive Date: 20091214
  Receipt Date: 20091203
  Transmission Date: 20100525
  Serious: Yes (Hospitalization)
  Sender: FDA-Public Use
  Company Number: ZA-SANOFI-AVENTIS-2009SA005828

PATIENT
  Age: 74 Year
  Sex: Male

DRUGS (3)
  1. STILNOX MR [Suspect]
     Indication: INSOMNIA
     Route: 048
     Dates: start: 20091120, end: 20091124
  2. PERFALGAN [Concomitant]
     Indication: POSTOPERATIVE ANALGESIA
     Route: 065
     Dates: start: 20091120, end: 20091124
  3. TRAMAL [Concomitant]
     Indication: POSTOPERATIVE ANALGESIA
     Route: 065
     Dates: start: 20091120, end: 20091124

REACTIONS (1)
  - PSYCHOTIC DISORDER [None]
